FAERS Safety Report 25153236 (Version 1)
Quarter: 2025Q2

REPORT INFORMATION
  Report Type: Report from Study
  Country: BR (occurrence: BR)
  Receive Date: 20250403
  Receipt Date: 20250403
  Transmission Date: 20250717
  Serious: Yes (Hospitalization)
  Sender: BIOGEN
  Company Number: BR-BIOGEN-2025BI01305930

PATIENT
  Age: 45 Year
  Sex: Female
  Weight: 90 kg

DRUGS (1)
  1. TYSABRI [Suspect]
     Active Substance: NATALIZUMAB
     Indication: Multiple sclerosis
     Route: 050
     Dates: start: 20240216

REACTIONS (13)
  - Pain [Not Recovered/Not Resolved]
  - Dizziness [Not Recovered/Not Resolved]
  - Urinary tract infection [Unknown]
  - Influenza [Not Recovered/Not Resolved]
  - Therapeutic response shortened [Unknown]
  - Multiple sclerosis [Unknown]
  - Nervousness [Unknown]
  - Malaise [Unknown]
  - Pneumonia [Unknown]
  - Oropharyngeal pain [Not Recovered/Not Resolved]
  - Decreased immune responsiveness [Unknown]
  - Depression [Unknown]
  - Hypersensitivity [Unknown]

NARRATIVE: CASE EVENT DATE: 20240216
